FAERS Safety Report 11498528 (Version 1)
Quarter: 2015Q3

REPORT INFORMATION
  Report Type: Spontaneous
  Country: CN (occurrence: CN)
  Receive Date: 20150911
  Receipt Date: 20150911
  Transmission Date: 20151125
  Serious: Yes (Hospitalization)
  Sender: FDA-Public Use
  Company Number: CN-ROXANE LABORATORIES, INC.-2015-RO-01505RO

PATIENT
  Age: 26 Year
  Sex: Female

DRUGS (1)
  1. PREDNISONE. [Suspect]
     Active Substance: PREDNISONE
     Indication: SYSTEMIC LUPUS ERYTHEMATOSUS
     Dosage: 10 MG
     Route: 048

REACTIONS (2)
  - Renal failure [Recovered/Resolved]
  - Renal tuberculosis [Recovered/Resolved]
